FAERS Safety Report 8456295-0 (Version None)
Quarter: 2012Q2

REPORT INFORMATION
  Report Type: 
  Country: None (occurrence: None)
  Receive Date: 20120621
  Receipt Date: 20120609
  Transmission Date: 20120825
  Serious: Yes (Hospitalization)
  Sender: FDA-Public Use
  Company Number: US-ROCHE-1077617

PATIENT
  Age: 60 Year
  Sex: Female
  Weight: 77.7 kg

DRUGS (8)
  1. ATENOLOL [Concomitant]
  2. DIFLUCAN [Concomitant]
  3. PACLITAXEL [Suspect]
     Indication: OVARIAN EPITHELIAL CANCER
     Dosage: OVER 3 HRS ON DAY 1 (CYCLES 1-6).
     Route: 042
     Dates: start: 20110729
  4. CARBOPLATIN [Suspect]
     Indication: OVARIAN EPITHELIAL CANCER
     Dosage: AUC = 6; ON DAY 1 ( CYCLES 1-6)
     Route: 042
     Dates: start: 20110729
  5. NEXIUM [Concomitant]
  6. ATIVAN [Concomitant]
  7. AVASTIN [Suspect]
     Indication: OVARIAN EPITHELIAL CANCER
     Dosage: OVER 30-90 MINUTES ON DAY 1 STARTING WITH CYCLES 2
     Route: 042
  8. DOCETAXEL [Suspect]
     Indication: OVARIAN EPITHELIAL CANCER
     Dosage: AFTER PACLITAXEL WAS DISCONTINUED

REACTIONS (4)
  - HYPONATRAEMIA [None]
  - RENAL FAILURE ACUTE [None]
  - HYPERKALAEMIA [None]
  - DIARRHOEA [None]
